FAERS Safety Report 5179309-2 (Version None)
Quarter: 2006Q4

REPORT INFORMATION
  Report Type: 
  Country: None (occurrence: None)
  Receive Date: 20061219
  Receipt Date: 20061215
  Transmission Date: 20070319
  Serious: Yes (Other)
  Sender: FDA-Public Use
  Company Number: US-GLAXOSMITHKLINE-A0631738A

PATIENT
  Age: 25 Year
  Sex: Female

DRUGS (6)
  1. ADVAIR DISKUS 100/50 [Suspect]
     Indication: ASTHMA
     Dosage: 1PUFF TWICE PER DAY
     Route: 055
  2. ABILIFY [Concomitant]
  3. TOPAMAX [Concomitant]
  4. TRAZODONE HCL [Concomitant]
  5. ALBUTEROL [Concomitant]
  6. CYMBALTA [Concomitant]

REACTIONS (3)
  - INSOMNIA [None]
  - RESTLESS LEGS SYNDROME [None]
  - SELF MUTILATION [None]
